FAERS Safety Report 17684301 (Version 5)
Quarter: 2020Q3

REPORT INFORMATION
  Report Type: Spontaneous
  Country: US (occurrence: US)
  Receive Date: 20200420
  Receipt Date: 20200831
  Transmission Date: 20201102
  Serious: Yes (Death, Other)
  Sender: FDA-Public Use
  Company Number: US-TAKEDA-2020TUS018887

PATIENT

DRUGS (15)
  1. PREVACID [Suspect]
     Active Substance: LANSOPRAZOLE
     Dosage: 40 MILLIGRAM, QD
     Route: 048
     Dates: start: 2002
  2. LEVAQUIN [Concomitant]
     Active Substance: LEVOFLOXACIN
     Indication: INFECTION
     Dosage: UNK
     Dates: start: 200209
  3. PRILOSEC [Suspect]
     Active Substance: OMEPRAZOLE MAGNESIUM
     Indication: GASTROOESOPHAGEAL REFLUX DISEASE
     Dosage: 20 MILLIGRAM, QD
     Route: 048
     Dates: start: 2000, end: 2002
  4. LIPITOR [Concomitant]
     Active Substance: ATORVASTATIN CALCIUM
     Indication: BLOOD CHOLESTEROL ABNORMAL
     Dosage: UNK
     Dates: start: 2000, end: 2005
  5. FUROSEMIDE. [Concomitant]
     Active Substance: FUROSEMIDE
     Indication: SWELLING
     Dosage: UNK
     Dates: start: 2002, end: 2004
  6. OMEPRAZOLE. [Suspect]
     Active Substance: OMEPRAZOLE
     Indication: GASTROOESOPHAGEAL REFLUX DISEASE
     Dosage: 20 MILLIGRAM, QD
     Route: 048
     Dates: start: 2000
  7. COZAAR [Concomitant]
     Active Substance: LOSARTAN POTASSIUM
     Indication: BLOOD PRESSURE ABNORMAL
     Dosage: UNK
     Dates: start: 2002, end: 2005
  8. PREVACID [Suspect]
     Active Substance: LANSOPRAZOLE
     Indication: GASTROOESOPHAGEAL REFLUX DISEASE
     Dosage: UNK
     Route: 048
     Dates: start: 2000
  9. OMEPRAZOLE. [Suspect]
     Active Substance: OMEPRAZOLE
     Dosage: 20 MILLIGRAM, QD
     Route: 048
     Dates: start: 2003, end: 2012
  10. OMEPRAZOLE MAGNESIUM. [Suspect]
     Active Substance: OMEPRAZOLE MAGNESIUM
     Indication: GASTROOESOPHAGEAL REFLUX DISEASE
     Dosage: 20 MILLIGRAM, QD
     Route: 048
     Dates: start: 2003
  11. CELEBREX [Concomitant]
     Active Substance: CELECOXIB
     Indication: PAIN
     Dosage: UNK
     Dates: start: 2001, end: 2004
  12. PROTONIX [Suspect]
     Active Substance: PANTOPRAZOLE SODIUM
     Indication: GASTROOESOPHAGEAL REFLUX DISEASE
     Dosage: 40 MILLIGRAM
     Route: 048
     Dates: start: 2007
  13. OMEPRAZOLE. [Suspect]
     Active Substance: OMEPRAZOLE
     Dosage: 20 MILLIGRAM, QD
     Route: 048
     Dates: start: 2003
  14. AZITHROMYCIN ANHYDROUS. [Concomitant]
     Active Substance: AZITHROMYCIN ANHYDROUS
     Indication: INFECTION
     Dosage: UNK
     Dates: start: 201204
  15. ZANTAC [Concomitant]
     Active Substance: RANITIDINE HYDROCHLORIDE

REACTIONS (4)
  - Acute kidney injury [Fatal]
  - Chronic kidney disease [Fatal]
  - Renal failure [Fatal]
  - Chronic obstructive pulmonary disease [Fatal]

NARRATIVE: CASE EVENT DATE: 2008
